FAERS Safety Report 15198501 (Version 1)
Quarter: 2018Q3

REPORT INFORMATION
  Report Type: Spontaneous
  Country: US (occurrence: US)
  Receive Date: 20180627
  Receipt Date: 20180627
  Transmission Date: 20181010
  Serious: No
  Sender: FDA-Public Use
  Company Number: None

PATIENT
  Age: 85 Year
  Sex: Male
  Weight: 96.57 kg

DRUGS (1)
  1. SODIUM BIPHOSPHATE/SODIUM PHOSPHATE [Suspect]
     Active Substance: SODIUM PHOSPHATE\SODIUM PHOSPHATE, MONOBASIC, UNSPECIFIED FORM
     Indication: SURGERY
     Dosage: ?          OTHER DOSE:1 UNITS;?
     Route: 054
     Dates: start: 20180326, end: 20180326

REACTIONS (2)
  - Blood urea increased [None]
  - Acute kidney injury [None]

NARRATIVE: CASE EVENT DATE: 20180404
